FAERS Safety Report 9091236 (Version 1)
Quarter: 2013Q1

REPORT INFORMATION
  Report Type: Report from Study
  Country: US (occurrence: US)
  Receive Date: 20130201
  Receipt Date: 20130201
  Transmission Date: 20140127
  Serious: No
  Sender: FDA-Public Use
  Company Number: US-ABBOTT-12P-163-1019919-00

PATIENT
  Age: 69 Year
  Sex: Female

DRUGS (16)
  1. HUMIRA [Suspect]
     Indication: CROHN^S DISEASE
     Dates: start: 20121010
  2. GLUCOPHAGE [Concomitant]
     Indication: DIABETES MELLITUS
     Dosage: EVERY PM
  3. VERAPAMIL [Concomitant]
     Indication: BLOOD PRESSURE
     Dosage: 20MG DAILY
  4. NORVASC [Concomitant]
     Indication: BLOOD PRESSURE
     Dosage: 5MG DAILY
  5. SYNTHROID [Concomitant]
     Indication: PRODUCT USED FOR UNKNOWN INDICATION
  6. FUROSEMIDE [Concomitant]
     Indication: SWELLING
     Dosage: 40MG DAILY
  7. ASPIRIN [Concomitant]
     Indication: PRODUCT USED FOR UNKNOWN INDICATION
     Dosage: 81MG DAILY
  8. CRESTOR [Concomitant]
     Indication: BLOOD CHOLESTEROL
     Dosage: 20MG DAILY
  9. ASACOL [Concomitant]
     Indication: CROHN^S DISEASE
  10. PENTASA [Concomitant]
     Indication: CROHN^S DISEASE
  11. VITAMIN D [Concomitant]
     Indication: PRODUCT USED FOR UNKNOWN INDICATION
     Dosage: 5000 IU EVERY OTHER WEEK
  12. PEPCID [Concomitant]
     Indication: GASTRIC DISORDER
     Dosage: 40MG DAILY
  13. MULTIVITAMIN [Concomitant]
     Indication: PRODUCT USED FOR UNKNOWN INDICATION
     Dosage: DAILY
  14. UNKNOWN EYE DROPS [Concomitant]
     Indication: GLAUCOMA
  15. UNKNOWN EYE DROPS [Concomitant]
     Indication: CATARACT
  16. PROAIR [Concomitant]
     Indication: ASTHMA
     Dosage: INHALER DAILY

REACTIONS (2)
  - Constipation [Recovered/Resolved]
  - Haemorrhoids [Recovered/Resolved]
